FAERS Safety Report 6287540-8 (Version None)
Quarter: 2009Q3

REPORT INFORMATION
  Report Type: 
  Country: None (occurrence: None)
  Receive Date: 20090727
  Receipt Date: 20090720
  Transmission Date: 20100115
  Serious: Yes (Hospitalization)
  Sender: FDA-Public Use
  Company Number: 2009SP008042

PATIENT
  Age: 55 Year
  Sex: Female

DRUGS (9)
  1. PEG-INTRON [Suspect]
     Indication: HEPATITIS C
     Dosage: SC
     Route: 058
     Dates: start: 20090213
  2. RIBAVIRIN [Suspect]
     Indication: HEPATITIS C
     Dosage: PO
     Route: 048
     Dates: start: 20090213
  3. ASPIRIN [Concomitant]
  4. DESYREL [Concomitant]
  5. EFFEXOR [Concomitant]
  6. INDERAL [Concomitant]
  7. MULTI-VITAMINS [Concomitant]
  8. SEROQUEL [Concomitant]
  9. ALCOHOL [Suspect]
     Indication: DRUG USE FOR UNKNOWN INDICATION
     Dosage: PO
     Route: 048

REACTIONS (11)
  - ABASIA [None]
  - ALCOHOL INTERACTION [None]
  - BALANCE DISORDER [None]
  - BONE MARROW FAILURE [None]
  - DRUG TOXICITY [None]
  - MALAISE [None]
  - MENTAL DISORDER [None]
  - NAUSEA [None]
  - TREMOR [None]
  - VIRAL INFECTION [None]
  - VOMITING [None]
